FAERS Safety Report 15128792 (Version 3)
Quarter: 2022Q1

REPORT INFORMATION
  Report Type: Other
  Country: US (occurrence: None)
  Receive Date: 20180711
  Receipt Date: 20220125
  Transmission Date: 20220424
  Serious: Yes (Hospitalization, Other)
  Sender: FDA-Public Use
  Company Number: US-ROCHE-2148255

PATIENT
  Age: 67 Year
  Sex: Female

DRUGS (32)
  1. OCREVUS [Suspect]
     Active Substance: OCRELIZUMAB
     Indication: Primary progressive multiple sclerosis
     Dosage: ATE OF TREATMENT: 06/NOV/2020, 12/NOV/2020, 13/DEC/2021,
     Route: 042
     Dates: start: 201711
  2. OCREVUS [Suspect]
     Active Substance: OCRELIZUMAB
     Dosage: HALF DOSE
     Route: 042
     Dates: start: 20171102
  3. OCREVUS [Suspect]
     Active Substance: OCRELIZUMAB
     Dosage: HALF DOSE
     Route: 042
     Dates: start: 20171116
  4. OCREVUS [Suspect]
     Active Substance: OCRELIZUMAB
     Dosage: FULL DOSE
     Route: 042
     Dates: start: 20180612
  5. AMPYRA [Concomitant]
     Active Substance: DALFAMPRIDINE
     Indication: Primary progressive multiple sclerosis
  6. DALFAMPRIDINE [Concomitant]
     Active Substance: DALFAMPRIDINE
     Indication: Multiple sclerosis
     Route: 048
     Dates: start: 201709
  7. PYRIDOSTIGMINE BROMIDE [Concomitant]
     Active Substance: PYRIDOSTIGMINE BROMIDE
     Indication: Myasthenia gravis
     Route: 048
     Dates: start: 200609
  8. PREDNISONE [Concomitant]
     Active Substance: PREDNISONE
     Dosage: EVERY OTHER DAY FREQUENCY
     Route: 048
     Dates: start: 2008
  9. BYSTOLIC [Concomitant]
     Active Substance: NEBIVOLOL HYDROCHLORIDE
     Indication: Mitral valve prolapse
     Route: 048
     Dates: start: 1991
  10. LOSARTAN [Concomitant]
     Active Substance: LOSARTAN
     Indication: Hypertension
     Dosage: 50 MG TWICE DAILY
     Route: 048
     Dates: start: 202006
  11. HYDROCHLOROTHIAZIDE\TRIAMTERENE [Concomitant]
     Active Substance: HYDROCHLOROTHIAZIDE\TRIAMTERENE
     Indication: Blood pressure measurement
     Dosage: DOSE IS 37.5/25 MG
     Route: 048
     Dates: start: 1990
  12. ASPIRIN [Concomitant]
     Active Substance: ASPIRIN
     Route: 048
  13. RABEPRAZOLE [Concomitant]
     Active Substance: RABEPRAZOLE
     Indication: Gastrooesophageal reflux disease
     Route: 048
     Dates: start: 202008
  14. BETHANECHOL [Concomitant]
     Active Substance: BETHANECHOL
     Route: 048
     Dates: start: 2018
  15. MIRALAX [Concomitant]
     Active Substance: POLYETHYLENE GLYCOL 3350
     Route: 048
     Dates: start: 2005
  16. LINZESS [Concomitant]
     Active Substance: LINACLOTIDE
     Dosage: EVERY MORNING
     Route: 048
     Dates: start: 2017
  17. HYDROXYCHLOROQUINE [Concomitant]
     Active Substance: HYDROXYCHLOROQUINE
     Dosage: 2 EVERY MORNING
     Route: 048
     Dates: start: 2014
  18. PROLIA [Concomitant]
     Active Substance: DENOSUMAB
     Indication: Osteoporosis
     Dosage: ROUTE IS INJECTION NOT SPECIFIED
     Dates: start: 2016
  19. FLONASE [Concomitant]
     Active Substance: FLUTICASONE PROPIONATE
     Indication: Hypersensitivity
     Route: 045
     Dates: start: 2010
  20. AZELASTINE [Concomitant]
     Active Substance: AZELASTINE
     Indication: Hypersensitivity
     Route: 045
     Dates: start: 202106
  21. ZYRTEC (UNITED STATES) [Concomitant]
     Indication: Hypersensitivity
     Route: 048
     Dates: start: 200805
  22. MONTELUKAST [Concomitant]
     Active Substance: MONTELUKAST SODIUM
     Indication: Asthma
     Dosage: AT NIGHT
     Route: 048
     Dates: start: 200805
  23. SYMBICORT [Concomitant]
     Active Substance: BUDESONIDE\FORMOTEROL FUMARATE DIHYDRATE
     Indication: Asthma
     Dosage: 160/4.5 MCG
     Route: 055
     Dates: start: 200806
  24. ALVESCO [Concomitant]
     Active Substance: CICLESONIDE
     Indication: Asthma
     Route: 055
     Dates: start: 201004
  25. PROAIR HFA [Concomitant]
     Active Substance: ALBUTEROL SULFATE
     Dosage: 1-2 PUFFS , AS REQUIRED
     Route: 055
     Dates: start: 200806
  26. TIZANIDINE [Concomitant]
     Active Substance: TIZANIDINE
     Dosage: 4 MG , 2 TABLETS/ CAPSULE 4 TIMES A DAY AS REQUIRED
     Route: 048
  27. MECLIZINE [Concomitant]
     Active Substance: MECLIZINE HYDROCHLORIDE
     Indication: Vertigo
     Dosage: EVERY 6 TO 8 HOURS
     Route: 048
     Dates: start: 2017
  28. ZOFRAN [Concomitant]
     Active Substance: ONDANSETRON HYDROCHLORIDE
     Indication: Nausea
     Dosage: AS REQUIRED, 4 MG 1-2
     Route: 048
     Dates: start: 201709
  29. ZOFRAN [Concomitant]
     Active Substance: ONDANSETRON HYDROCHLORIDE
     Indication: Vertigo
  30. VITAMIN B12 [Concomitant]
     Active Substance: CYANOCOBALAMIN
     Indication: Vitamin B12 decreased
     Route: 048
  31. VITAMIN D3 [Concomitant]
     Active Substance: CHOLECALCIFEROL
     Indication: Multiple sclerosis
     Route: 048
     Dates: start: 201709
  32. CALCIUM CARBONATE\CHOLECALCIFEROL [Concomitant]
     Active Substance: CALCIUM CARBONATE\CHOLECALCIFEROL
     Indication: Osteopenia
     Dosage: CALCIUM IS 1200 MG AND VITAMIN D IS 40 MCG CHEWABLE DAILY
     Dates: start: 2000

REACTIONS (17)
  - Pneumonia [Recovered/Resolved]
  - Influenza [Recovered/Resolved]
  - Oropharyngeal pain [Recovered/Resolved]
  - Asthma [Recovered/Resolved]
  - Weight increased [Not Recovered/Not Resolved]
  - Hunger [Not Recovered/Not Resolved]
  - Feeling abnormal [Not Recovered/Not Resolved]
  - Food craving [Not Recovered/Not Resolved]
  - Blood cholesterol decreased [Not Recovered/Not Resolved]
  - Asthenia [Not Recovered/Not Resolved]
  - Therapeutic response shortened [Not Recovered/Not Resolved]
  - Hypersensitivity [Not Recovered/Not Resolved]
  - Multiple sclerosis relapse [Unknown]
  - Blood pressure increased [Not Recovered/Not Resolved]
  - Carpal tunnel syndrome [Not Recovered/Not Resolved]
  - Fall [Unknown]
  - Infection [Recovered/Resolved]

NARRATIVE: CASE EVENT DATE: 20171101
